FAERS Safety Report 20219927 (Version 1)
Quarter: 2021Q4

REPORT INFORMATION
  Report Type: Spontaneous
  Country: US (occurrence: US)
  Receive Date: 20211222
  Receipt Date: 20211222
  Transmission Date: 20220303
  Serious: No
  Sender: FDA-Public Use
  Company Number: US-BIOGEN-2021BI01043130

PATIENT
  Sex: Male

DRUGS (2)
  1. SPINRAZA [Suspect]
     Active Substance: NUSINERSEN
     Indication: Spinal muscular atrophy
     Route: 037
  2. SPINRAZA [Suspect]
     Active Substance: NUSINERSEN
     Route: 065

REACTIONS (4)
  - Procedural pain [Recovered/Resolved]
  - Gait disturbance [Recovered/Resolved]
  - Therapeutic response shortened [Not Recovered/Not Resolved]
  - Post lumbar puncture syndrome [Recovered/Resolved]
